FAERS Safety Report 5302784-7 (Version None)
Quarter: 2007Q2

REPORT INFORMATION
  Report Type: 
  Country: None (occurrence: None)
  Receive Date: 20070419
  Receipt Date: 20070412
  Transmission Date: 20071010
  Serious: Yes (Hospitalization, Other)
  Sender: FDA-Public Use
  Company Number: US-MERCK-0704USA02809

PATIENT
  Age: 70 Year
  Sex: Female

DRUGS (1)
  1. SINGULAIR [Suspect]
     Route: 048
     Dates: end: 20070101

REACTIONS (3)
  - ADVERSE EVENT [None]
  - ALLERGIC GRANULOMATOUS ANGIITIS [None]
  - BLOOD CREATININE INCREASED [None]
